FAERS Safety Report 5881246-2 (Version None)
Quarter: 2008Q3

REPORT INFORMATION
  Report Type: 
  Country: None (occurrence: None)
  Receive Date: 20080912
  Receipt Date: 20080623
  Transmission Date: 20090109
  Serious: No
  Sender: FDA-Public Use
  Company Number: US-ABBOTT-08P-163-0459185-00

PATIENT
  Sex: Male

DRUGS (12)
  1. HUMIRA [Suspect]
     Indication: ANKYLOSING SPONDYLITIS
     Route: 058
  2. DULOXETINE HYDROCHLORIDE [Concomitant]
     Indication: DRUG USE FOR UNKNOWN INDICATION
  3. MODAFINIL [Concomitant]
     Indication: DRUG USE FOR UNKNOWN INDICATION
  4. CETIRIZINE HYDROCHLORIDE [Concomitant]
     Indication: DRUG USE FOR UNKNOWN INDICATION
  5. CYCLOBENZAPRINE HCL [Concomitant]
     Indication: DRUG USE FOR UNKNOWN INDICATION
  6. MORPHINE HCL ELIXIR [Concomitant]
     Indication: DRUG USE FOR UNKNOWN INDICATION
     Dosage: LONG ACTING
  7. MORPHINE HCL ELIXIR [Concomitant]
     Dosage: IMMEDIATE RELEASE
  8. TOLTERODINE TARTRATE [Concomitant]
     Indication: DRUG USE FOR UNKNOWN INDICATION
  9. PREGABALIN [Concomitant]
     Indication: DRUG USE FOR UNKNOWN INDICATION
  10. INHALER [Concomitant]
     Indication: DRUG USE FOR UNKNOWN INDICATION
  11. TRAZODONE HCL [Concomitant]
     Indication: INSOMNIA
  12. ESZOPICLONE [Concomitant]
     Indication: INSOMNIA

REACTIONS (9)
  - EYE INFECTION [None]
  - INFECTION PARASITIC [None]
  - INFESTATION [None]
  - OEDEMA [None]
  - PRODUCTIVE COUGH [None]
  - STOMATITIS [None]
  - SYSTEMIC MYCOSIS [None]
  - VARICOSE VEIN [None]
  - WOUND [None]
